FAERS Safety Report 4954467-0 (Version None)
Quarter: 2006Q1

REPORT INFORMATION
  Report Type: 
  Country: None (occurrence: None)
  Receive Date: 20060327
  Receipt Date: 20060227
  Transmission Date: 20060701
  Serious: Yes (Other)
  Sender: FDA-Public Use
  Company Number: US-BRISTOL-MYERS SQUIBB COMPANY-13297577

PATIENT
  Sex: Female

DRUGS (1)
  1. GLYBURIDE AND METFORMIN HCL [Suspect]

REACTIONS (4)
  - ANGIONEUROTIC OEDEMA [None]
  - BLOOD CHOLESTEROL DECREASED [None]
  - INSOMNIA [None]
  - PRURITUS [None]
